FAERS Safety Report 8503952-3 (Version None)
Quarter: 2012Q3

REPORT INFORMATION
  Report Type: 
  Country: None (occurrence: None)
  Receive Date: 20120711
  Receipt Date: 20120702
  Transmission Date: 20120928
  Serious: Yes (Hospitalization, Other)
  Sender: FDA-Public Use
  Company Number: US-ACTELION-A-US2012-67961

PATIENT

DRUGS (3)
  1. COUMADIN [Concomitant]
  2. BUMEX [Concomitant]
  3. TRACLEER [Suspect]
     Indication: PULMONARY ARTERIAL HYPERTENSION
     Dosage: UNK
     Route: 048

REACTIONS (6)
  - FATIGUE [None]
  - DYSPNOEA [None]
  - CHOLECYSTECTOMY [None]
  - ABDOMINAL PAIN UPPER [None]
  - SWELLING [None]
  - COUGH [None]
